FAERS Safety Report 25433460 (Version 2)
Quarter: 2025Q2

REPORT INFORMATION
  Report Type: Report from Study
  Country: ES (occurrence: ES)
  Receive Date: 20250613
  Receipt Date: 20250625
  Transmission Date: 20250716
  Serious: Yes (Hospitalization)
  Sender: EMD SERONO INC
  Company Number: ES-Merck Healthcare KGaA-2025028803

PATIENT
  Age: 33 Year
  Sex: Female

DRUGS (7)
  1. CLADRIBINE [Suspect]
     Active Substance: CLADRIBINE
     Indication: Relapsing multiple sclerosis
  2. CLADRIBINE [Suspect]
     Active Substance: CLADRIBINE
  3. CLADRIBINE [Suspect]
     Active Substance: CLADRIBINE
     Dates: start: 20200217, end: 20200221
  4. CLADRIBINE [Suspect]
     Active Substance: CLADRIBINE
  5. FERPLEX [Concomitant]
     Indication: Iron deficiency anaemia
     Dates: start: 20171102
  6. METHYLPREDNISOLONE [Concomitant]
     Active Substance: METHYLPREDNISOLONE
     Indication: Multiple sclerosis relapse
     Dates: start: 20200115, end: 20200117
  7. CHOLECALCIFEROL [Concomitant]
     Active Substance: CHOLECALCIFEROL
     Indication: Vitamin D deficiency
     Dates: start: 20220729, end: 20230508

REACTIONS (1)
  - Infectious mononucleosis [Recovered/Resolved]

NARRATIVE: CASE EVENT DATE: 20240105
